FAERS Safety Report 14216370 (Version 2)
Quarter: 2017Q4

REPORT INFORMATION
  Report Type: Spontaneous
  Country: US (occurrence: US)
  Receive Date: 20171122
  Receipt Date: 20171126
  Transmission Date: 20180321
  Serious: Yes (Hospitalization)
  Sender: FDA-Public Use
  Company Number: US-CELGENEUS-USA-20171106423

PATIENT
  Age: 77 Year
  Sex: Female
  Weight: 54.03 kg

DRUGS (1)
  1. POMALYST [Suspect]
     Active Substance: POMALIDOMIDE
     Indication: PLASMA CELL MYELOMA
     Dosage: 2 MILLIGRAM
     Route: 048
     Dates: start: 20171113

REACTIONS (4)
  - Asthenia [Unknown]
  - Haemoglobin decreased [Unknown]
  - Carbon dioxide increased [Unknown]
  - Malaise [Unknown]

NARRATIVE: CASE EVENT DATE: 20171114
